FAERS Safety Report 17632155 (Version 1)
Quarter: 2020Q2

REPORT INFORMATION
  Report Type: Spontaneous
  Country: DE (occurrence: DE)
  Receive Date: 20200406
  Receipt Date: 20200406
  Transmission Date: 20200713
  Serious: Yes (Other)
  Sender: FDA-Public Use
  Company Number: DE-PFIZER INC-2020136554

PATIENT
  Sex: Female
  Weight: 77 kg

DRUGS (5)
  1. CARBOPLATIN. [Suspect]
     Active Substance: CARBOPLATIN
     Dosage: UNK
     Route: 065
  2. LEVOTHYROXINE. [Concomitant]
     Active Substance: LEVOTHYROXINE
     Dosage: UNK
     Route: 065
     Dates: start: 2012
  3. CYCLOPHOSPHAMIDE. [Suspect]
     Active Substance: CYCLOPHOSPHAMIDE
     Dosage: UNK
     Route: 065
  4. EPIRUBICIN HCL [Suspect]
     Active Substance: EPIRUBICIN HYDROCHLORIDE
     Dosage: UNK (APPROX. 3 MONTHSAT TIME OF FIRST SYMPTOMS)
     Route: 065
     Dates: start: 201809
  5. PACLITAXEL. [Suspect]
     Active Substance: PACLITAXEL
     Dosage: UNK (APPROX. 3 MONTHSAT TIME OF FIRST SYMPTOMS)
     Route: 065
     Dates: start: 201809

REACTIONS (7)
  - Subclavian vein thrombosis [Unknown]
  - Dyspnoea [Unknown]
  - Venous thrombosis [Unknown]
  - Pneumonia [Unknown]
  - Myalgia [Unknown]
  - Pulmonary embolism [Unknown]
  - Deep vein thrombosis [Unknown]

NARRATIVE: CASE EVENT DATE: 20181227
